FAERS Safety Report 24591044 (Version 1)
Quarter: 2024Q4

REPORT INFORMATION
  Report Type: Report from Study
  Country: CA (occurrence: CA)
  Receive Date: 20241107
  Receipt Date: 20241107
  Transmission Date: 20250115
  Serious: Yes (Hospitalization, Other)
  Sender: ABBVIE
  Company Number: CA-ABBVIE-5990116

PATIENT
  Age: 76 Year
  Sex: Male

DRUGS (1)
  1. RINVOQ [Suspect]
     Active Substance: UPADACITINIB
     Indication: Crohn^s disease
     Dosage: FORM STRENGTH WAS 30 MILLIGRAMS
     Route: 048
     Dates: start: 20240612

REACTIONS (6)
  - COVID-19 [Unknown]
  - Pyrexia [Not Recovered/Not Resolved]
  - Liver abscess [Unknown]
  - Intracranial aneurysm [Unknown]
  - Clostridium difficile infection [Unknown]
  - Thyroid cancer [Unknown]

NARRATIVE: CASE EVENT DATE: 20240101
